FAERS Safety Report 7054097-3 (Version None)
Quarter: 2010Q4

REPORT INFORMATION
  Report Type: 
  Country: None (occurrence: None)
  Receive Date: 20101014
  Receipt Date: 20100928
  Transmission Date: 20110411
  Serious: Yes (Death)
  Sender: FDA-Public Use
  Company Number: TCI2010A04092

PATIENT
  Age: 60 Year
  Sex: Male

DRUGS (4)
  1. ROZEREM [Suspect]
     Indication: INSOMNIA
     Dosage: 8 MG (8 MG, BEFORE SLEEP)
     Route: 048
     Dates: start: 20100908
  2. CARBAMAZEPINE [Concomitant]
  3. NITRAZEPAM [Concomitant]
  4. SENNOSIDE (SENNOSIDE A+B CALCIUM) [Concomitant]

REACTIONS (2)
  - CARDIAC FAILURE ACUTE [None]
  - HYPOGLYCAEMIA [None]
